FAERS Safety Report 4369129-0 (Version None)
Quarter: 2004Q2

REPORT INFORMATION
  Report Type: 
  Country: None (occurrence: None)
  Receive Date: 20040527
  Receipt Date: 20040514
  Transmission Date: 20050107
  Serious: Yes (Other)
  Sender: FDA-Public Use
  Company Number: 2004009823

PATIENT
  Age: 67 Year
  Sex: Female
  Weight: 85.7298 kg

DRUGS (10)
  1. NEURONTIN [Suspect]
     Indication: DIABETIC NEUROPATHY
     Dosage: 900 MG (300 MG, 3 IN 1 D), ORAL
     Route: 048
  2. NEURONTIN [Suspect]
     Indication: PAIN
     Dosage: 900 MG (300 MG, 3 IN 1 D), ORAL
     Route: 048
  3. INSULIN (HUMAN INJECTION, ISOPHANE (INSULIN HUMAN INJECTION, ISOPHANE) [Concomitant]
  4. STARLIX [Concomitant]
  5. INSULIN [Concomitant]
  6. DOXEPIN HYDROCHLORIDE (DOXEPIN HYDROCHLORIDE) [Concomitant]
  7. ATENOLOL [Concomitant]
  8. SIMVASTATIN [Concomitant]
  9. ALPRAZOLAM [Concomitant]
  10. CLORAZEPATE DIPOTASSIUM [Concomitant]

REACTIONS (8)
  - ARTHRITIS [None]
  - DRUG INTOLERANCE [None]
  - EXOSTOSIS [None]
  - KNEE ARTHROPLASTY [None]
  - KNEE OPERATION [None]
  - MEMORY IMPAIRMENT [None]
  - POST PROCEDURAL COMPLICATION [None]
  - SOMNOLENCE [None]
